FAERS Safety Report 9222203 (Version 1)
Quarter: 2013Q2

REPORT INFORMATION
  Report Type: Report from Study
  Country: JP (occurrence: JP)
  Receive Date: 20130410
  Receipt Date: 20130410
  Transmission Date: 20140414
  Serious: Yes (Other)
  Sender: FDA-Public Use
  Company Number: PHHY2012JP097729

PATIENT
  Age: 47 Year
  Sex: Female

DRUGS (4)
  1. FTY 720 [Suspect]
     Indication: MULTIPLE SCLEROSIS RELAPSE
     Dosage: 0.5 MG, QD
     Route: 048
     Dates: start: 20120323
  2. LIPITOR [Concomitant]
     Dosage: 10 MG, UNK
     Route: 048
     Dates: start: 20100722
  3. KETAS [Concomitant]
     Dosage: 30 MG, UNK
     Route: 048
     Dates: start: 20100722
  4. FOSAMAC [Concomitant]
     Dosage: 35 MG, QW
     Route: 048

REACTIONS (3)
  - Muscular weakness [Recovering/Resolving]
  - Lymphocyte count decreased [Recovered/Resolved]
  - White blood cell count decreased [Recovered/Resolved]
